FAERS Safety Report 9925168 (Version 3)
Quarter: 2014Q4

REPORT INFORMATION
  Report Type: Spontaneous
  Country: US (occurrence: None)
  Receive Date: 20140220
  Receipt Date: 20141218
  Transmission Date: 20150529
  Serious: Yes (Hospitalization)
  Sender: FDA-Public Use
  Company Number: 1713747-2014-99908

PATIENT
  Age: 56 Year
  Sex: Male
  Weight: 95.5 kg

DRUGS (13)
  1. CALAPRES [Concomitant]
  2. LIBERTY CYCLER CASSETTE [Concomitant]
     Active Substance: DEVICE
  3. XANAX [Concomitant]
     Active Substance: ALPRAZOLAM
  4. COOZAR [Concomitant]
  5. LIBERTY CYCLER CASSETTE [Concomitant]
     Active Substance: DEVICE
  6. LOPRESSOR [Concomitant]
     Active Substance: METOPROLOL TARTRATE
  7. DELFLEX WITH DEXTROSE 2.5% LOW MAGNESIUM LOW CALCIUM [Suspect]
     Active Substance: CALCIUM CHLORIDE\DEXTROSE MONOHYDRATE\MAGNESIUM CHLORIDE\SODIUM CHLORIDE\SODIUM LACTATE
     Indication: PERITONEAL DIALYSIS
     Route: 033
     Dates: start: 20140129
  8. HYDROCHLORTHIZIDE [Concomitant]
  9. LIBERTY CYCLER [Concomitant]
     Active Substance: DEVICE
  10. NEXIUM [Concomitant]
     Active Substance: ESOMEPRAZOLE MAGNESIUM
  11. LIBERTY CYCLER [Suspect]
     Active Substance: DEVICE
  12. APRESOLIN [Concomitant]
     Active Substance: HYDRALAZINE HYDROCHLORIDE
  13. LASIX [Concomitant]
     Active Substance: FUROSEMIDE

REACTIONS (10)
  - Hypersomnia [None]
  - Fluid overload [None]
  - Haemoptysis [None]
  - Pneumonia [None]
  - Pulmonary oedema [None]
  - Hypertensive emergency [None]
  - Treatment noncompliance [None]
  - Chronic obstructive pulmonary disease [None]
  - Dyspnoea [None]
  - Sleep apnoea syndrome [None]

NARRATIVE: CASE EVENT DATE: 20140129
